FAERS Safety Report 8844265 (Version 3)
Quarter: 2013Q3

REPORT INFORMATION
  Report Type: Spontaneous
  Country: US (occurrence: US)
  Receive Date: 20121017
  Receipt Date: 20130924
  Transmission Date: 20140515
  Serious: Yes (Hospitalization)
  Sender: FDA-Public Use
  Company Number: US-BAYER-2012-107022

PATIENT
  Age: 42 Year
  Sex: Female
  Weight: 72.56 kg

DRUGS (4)
  1. GIANVI [Suspect]
     Dosage: UNK
     Dates: start: 201009, end: 20101107
  2. YAZ [Suspect]
  3. LANSOPRAZOLE [Concomitant]
     Dosage: 30 MG, UNK
  4. IBUPROFEN [Concomitant]

REACTIONS (3)
  - Deep vein thrombosis [Recovered/Resolved]
  - Injury [Recovered/Resolved]
  - Pain in extremity [Recovered/Resolved]
